FAERS Safety Report 9902627 (Version 1)
Quarter: 2014Q1

REPORT INFORMATION
  Report Type: Spontaneous
  Country: ES (occurrence: ES)
  Receive Date: 20140217
  Receipt Date: 20140217
  Transmission Date: 20141002
  Serious: Yes (Hospitalization)
  Sender: FDA-Public Use
  Company Number: ES-JNJFOC-20140207313

PATIENT
  Age: 76 Year
  Sex: Female

DRUGS (9)
  1. XARELTO [Suspect]
     Indication: CEREBROVASCULAR ACCIDENT PROPHYLAXIS
     Route: 048
     Dates: start: 201305, end: 201312
  2. XARELTO [Suspect]
     Indication: ATRIAL FIBRILLATION
     Route: 048
     Dates: start: 201305, end: 201312
  3. PARACETAMOL [Concomitant]
     Route: 048
  4. TORASEMID [Concomitant]
     Indication: HYPERTENSION
     Route: 048
  5. CONDRO SAN [Concomitant]
     Route: 048
  6. IBUPROFENO [Concomitant]
     Route: 048
  7. METOPROLOL [Concomitant]
     Indication: HYPERTENSION
     Route: 048
  8. FELODIPIN [Concomitant]
     Indication: HYPERTENSION
     Route: 048
  9. CANDESARTAN [Concomitant]
     Indication: HYPERTENSION
     Route: 048

REACTIONS (1)
  - Hypochromic anaemia [Recovered/Resolved]
